FAERS Safety Report 25975964 (Version 2)
Quarter: 2025Q4

REPORT INFORMATION
  Report Type: Spontaneous
  Country: US (occurrence: US)
  Receive Date: 20251029
  Receipt Date: 20251112
  Transmission Date: 20260119
  Serious: Yes (Hospitalization)
  Sender: EMD SERONO INC
  Company Number: US-Merck Healthcare KGaA-2025053893

PATIENT
  Age: 46 Year
  Sex: Male

DRUGS (1)
  1. MAVENCLAD [Suspect]
     Active Substance: CLADRIBINE
     Indication: Multiple sclerosis

REACTIONS (5)
  - Disorientation [Unknown]
  - Chest pain [Unknown]
  - Peripheral swelling [Unknown]
  - Multiple sclerosis relapse [Unknown]
  - Feeling drunk [Unknown]
